FAERS Safety Report 22193058 (Version 1)
Quarter: 2023Q2

REPORT INFORMATION
  Report Type: Spontaneous
  Country: US (occurrence: US)
  Receive Date: 20230410
  Receipt Date: 20230410
  Transmission Date: 20230722
  Serious: No
  Sender: FDA-Public Use
  Company Number: US-THEA-2022001038

PATIENT
  Sex: Female

DRUGS (1)
  1. ZIOPTAN [Suspect]
     Active Substance: TAFLUPROST
     Indication: Ocular discomfort
     Dosage: ONE EYE AT NIGHT
     Route: 047
     Dates: start: 20220210, end: 20220517

REACTIONS (5)
  - Urinary tract infection [Recovering/Resolving]
  - Urinary incontinence [Recovering/Resolving]
  - Bladder discomfort [Recovering/Resolving]
  - Pollakiuria [Not Recovered/Not Resolved]
  - Therapeutic product effect incomplete [Unknown]

NARRATIVE: CASE EVENT DATE: 20220401
